FAERS Safety Report 15070219 (Version 1)
Quarter: 2018Q2

REPORT INFORMATION
  Report Type: Report from Study
  Country: None (occurrence: US)
  Receive Date: 20180626
  Receipt Date: 20180626
  Transmission Date: 20180711
  Serious: Yes (Other)
  Sender: FDA-Public Use
  Company Number: US-ABBVIE-18K-163-2379886-00

PATIENT
  Age: 74 Year
  Sex: Male
  Weight: 55.39 kg

DRUGS (5)
  1. URINOZINC [Concomitant]
     Indication: PROSTATIC DISORDER
  2. HUMIRA [Suspect]
     Active Substance: ADALIMUMAB
     Indication: CROHN^S DISEASE
     Route: 058
     Dates: start: 2016, end: 201804
  3. DUTASTERIDE. [Concomitant]
     Active Substance: DUTASTERIDE
     Indication: PROSTATIC DISORDER
  4. HUMIRA [Suspect]
     Active Substance: ADALIMUMAB
     Indication: COLITIS
  5. AMLODIPINE [Concomitant]
     Active Substance: AMLODIPINE BESYLATE
     Indication: BLOOD PRESSURE INCREASED

REACTIONS (16)
  - Fatigue [Recovered/Resolved]
  - Sinusitis [Recovered/Resolved]
  - Nervousness [Recovered/Resolved]
  - Hypoaesthesia [Recovered/Resolved]
  - Dyslexia [Recovered/Resolved]
  - Large intestine polyp [Recovered/Resolved]
  - Diarrhoea [Recovering/Resolving]
  - Balance disorder [Recovered/Resolved]
  - Dysgeusia [Recovered/Resolved]
  - Weight decreased [Recovered/Resolved]
  - Feeding disorder [Recovering/Resolving]
  - Paraesthesia [Recovered/Resolved]
  - Drug ineffective [Recovering/Resolving]
  - Vision blurred [Recovered/Resolved]
  - Anxiety [Recovered/Resolved]
  - Dizziness [Recovered/Resolved]

NARRATIVE: CASE EVENT DATE: 201709
